FAERS Safety Report 4707685-0 (Version None)
Quarter: 2005Q2

REPORT INFORMATION
  Report Type: 
  Country: None (occurrence: None)
  Receive Date: 20050629
  Receipt Date: 20050519
  Transmission Date: 20051028
  Serious: No
  Sender: FDA-Public Use
  Company Number: 05P-163-0300882-00

PATIENT
  Age: 58 Year
  Sex: Female
  Weight: 95 kg

DRUGS (4)
  1. HUMIRA [Suspect]
     Indication: RHEUMATOID ARTHRITIS
     Dosage: 40 MG, 1 IN 2 WK, SUBCUTANEOUS;  40 MG,  1/3 OF 40MG, SUBCUTANEOUS
     Route: 058
     Dates: start: 20050418, end: 20050512
  2. HUMIRA [Suspect]
     Indication: RHEUMATOID ARTHRITIS
     Dosage: 40 MG, 1 IN 2 WK, SUBCUTANEOUS;  40 MG,  1/3 OF 40MG, SUBCUTANEOUS
     Route: 058
     Dates: start: 20050512
  3. HYDROCHLOROTHIAZIDE [Concomitant]
  4. PAIN MEDICATIONS [Concomitant]

REACTIONS (4)
  - ERYTHEMA [None]
  - PARAESTHESIA ORAL [None]
  - PRURITUS [None]
  - RASH PRURITIC [None]
